FAERS Safety Report 7800335-6 (Version None)
Quarter: 2011Q4

REPORT INFORMATION
  Report Type: 
  Country: None (occurrence: None)
  Receive Date: 20111004
  Receipt Date: 20110921
  Transmission Date: 20120403
  Serious: Yes (Hospitalization)
  Sender: FDA-Public Use
  Company Number: FR-1188127

PATIENT
  Age: 72 Year
  Sex: Female

DRUGS (1)
  1. TOBRADEX [Suspect]
     Indication: CONJUNCTIVITIS
     Dosage: (OPHTHALMIC)
     Route: 047
     Dates: start: 20110406, end: 20110615

REACTIONS (2)
  - BLINDNESS TRANSIENT [None]
  - OCULAR HYPERTENSION [None]
